FAERS Safety Report 25826708 (Version 3)
Quarter: 2025Q4

REPORT INFORMATION
  Report Type: Spontaneous
  Country: EU (occurrence: EU)
  Receive Date: 20250920
  Receipt Date: 20251010
  Transmission Date: 20260118
  Serious: Yes (Other)
  Sender: UCB
  Company Number: EU-UCBSA-2025057618

PATIENT
  Age: 29 Year
  Sex: Female
  Weight: 127 kg

DRUGS (1)
  1. BIMZELX [Suspect]
     Active Substance: BIMEKIZUMAB-BKZX
     Indication: Psoriatic arthropathy
     Dosage: UNK
     Dates: start: 20250523, end: 2025

REACTIONS (1)
  - Breast abscess [Unknown]

NARRATIVE: CASE EVENT DATE: 20250101
